FAERS Safety Report 6747519-6 (Version None)
Quarter: 2010Q2

REPORT INFORMATION
  Report Type: 
  Country: None (occurrence: None)
  Receive Date: 20100528
  Receipt Date: 20100516
  Transmission Date: 20101027
  Serious: No
  Sender: FDA-Public Use
  Company Number: US-B.I. PHARMACEUTICALS,INC./RIDGEFIELD-2010-BP-05624BP

PATIENT
  Age: 54 Year
  Sex: Female

DRUGS (5)
  1. SPIRIVA [Suspect]
     Indication: CHRONIC OBSTRUCTIVE PULMONARY DISEASE
     Dosage: 18 MCG
     Route: 055
     Dates: start: 20100423, end: 20100514
  2. LORCET-HD [Concomitant]
     Indication: PAIN
     Dosage: 30 MG
     Route: 048
  3. XANAX [Concomitant]
     Indication: ANXIETY
     Route: 048
  4. XANAX [Concomitant]
     Indication: NERVOUSNESS
  5. SEROQUEL [Concomitant]
     Indication: INSOMNIA
     Route: 048

REACTIONS (5)
  - CHROMATOPSIA [None]
  - COUGH [None]
  - LOSS OF CONSCIOUSNESS [None]
  - TREMOR [None]
  - VISUAL IMPAIRMENT [None]
